FAERS Safety Report 13108751 (Version 1)
Quarter: 2017Q1

REPORT INFORMATION
  Report Type: Spontaneous
  Country: US (occurrence: US)
  Receive Date: 20170112
  Receipt Date: 20170112
  Transmission Date: 20170428
  Serious: No
  Sender: FDA-Public Use
  Company Number: US-LANTHEUS-LMI-2015-00686

PATIENT
  Age: 55 Year
  Sex: Male

DRUGS (3)
  1. LEXISCAN [Suspect]
     Active Substance: REGADENOSON
     Indication: STRESS ECHOCARDIOGRAM
     Route: 065
     Dates: start: 20151109, end: 20151109
  2. CARDIOLITE [Suspect]
     Active Substance: TECHNETIUM TC-99M SESTAMIBI
     Route: 065
     Dates: start: 20151109, end: 20151109
  3. CARDIOLITE [Suspect]
     Active Substance: TECHNETIUM TC-99M SESTAMIBI
     Indication: STRESS ECHOCARDIOGRAM
     Route: 065
     Dates: start: 20151109, end: 20151109

REACTIONS (3)
  - Syncope [Recovered/Resolved]
  - Dyspnoea [Recovered/Resolved]
  - Dizziness [Recovered/Resolved]

NARRATIVE: CASE EVENT DATE: 20151109
